FAERS Safety Report 12056223 (Version 1)
Quarter: 2016Q1

REPORT INFORMATION
  Report Type: Spontaneous
  Country: US (occurrence: US)
  Receive Date: 20160209
  Receipt Date: 20160209
  Transmission Date: 20160526
  Serious: Yes (Other)
  Sender: FDA-Public Use
  Company Number: US-PFIZER INC-2016060301

PATIENT

DRUGS (1)
  1. LYRICA [Suspect]
     Active Substance: PREGABALIN
     Indication: PAIN
     Dosage: UNK

REACTIONS (6)
  - Suicidal ideation [Unknown]
  - Mania [Unknown]
  - Emotional disorder [Unknown]
  - Logorrhoea [Unknown]
  - Disturbance in attention [Unknown]
  - Product use issue [Unknown]
